FAERS Safety Report 21688900 (Version 1)
Quarter: 2022Q4

REPORT INFORMATION
  Report Type: Spontaneous
  Country: None (occurrence: PT)
  Receive Date: 20221206
  Receipt Date: 20221206
  Transmission Date: 20230113
  Serious: Yes (Hospitalization, Other)
  Sender: FDA-Public Use
  Company Number: PT-B.Braun Medical Inc.-2135597

PATIENT
  Age: 46 Year
  Sex: Female

DRUGS (6)
  1. CEFAZOLIN [Suspect]
     Active Substance: CEFAZOLIN
  2. ROCURONIUM BROMIDE [Suspect]
     Active Substance: ROCURONIUM BROMIDE
  3. PROPOFOL [Suspect]
     Active Substance: PROPOFOL
  4. DEXAMETHASONE [Suspect]
     Active Substance: DEXAMETHASONE
  5. METHYLPREDNISOLONE [Suspect]
     Active Substance: METHYLPREDNISOLONE
  6. REMIFENTANIL HYDROCHLORIDE [Suspect]
     Active Substance: REMIFENTANIL HYDROCHLORIDE

REACTIONS (4)
  - Hypertensive crisis [Recovered/Resolved]
  - Intestinal obstruction [Recovered/Resolved]
  - Generalised oedema [Recovered/Resolved]
  - Urinary retention [Recovered/Resolved]
